FAERS Safety Report 6589343-3 (Version None)
Quarter: 2010Q1

REPORT INFORMATION
  Report Type: 
  Country: None (occurrence: None)
  Receive Date: 20100218
  Receipt Date: 20100209
  Transmission Date: 20100710
  Serious: Yes (Disabling, Other)
  Sender: FDA-Public Use
  Company Number: JP-JNJFOC-20091203388

PATIENT
  Age: 3 Year
  Sex: Male

DRUGS (1)
  1. LOPEMIN [Suspect]
     Indication: HAEMATOCHEZIA
     Route: 048

REACTIONS (4)
  - CONDITION AGGRAVATED [None]
  - CONTRAINDICATION TO MEDICAL TREATMENT [None]
  - HAEMOLYTIC URAEMIC SYNDROME [None]
  - MENTAL DISABILITY [None]
